FAERS Safety Report 6511161-2 (Version None)
Quarter: 2009Q4

REPORT INFORMATION
  Report Type: 
  Country: None (occurrence: None)
  Receive Date: 20091222
  Receipt Date: 20091215
  Transmission Date: 20100525
  Serious: Yes (Hospitalization)
  Sender: FDA-Public Use
  Company Number: FR-ELI_LILLY_AND_COMPANY-FR200910004175

PATIENT
  Sex: Male
  Weight: 48 kg

DRUGS (9)
  1. PEMETREXED [Suspect]
     Indication: NON-SMALL CELL LUNG CANCER
     Dosage: 500 MG/M2, DAY 1 EVERY 21 DAYS
     Route: 042
     Dates: start: 20090716, end: 20090915
  2. PEMETREXED [Suspect]
     Dosage: UNK, DAY ONE EVEY 21 DAYS
     Route: 042
     Dates: start: 20091007
  3. CISPLATIN [Suspect]
     Indication: NON-SMALL CELL LUNG CANCER
     Dosage: 75 MG/M2, DAY 1 EVERY 21 DAYS
     Route: 042
     Dates: start: 20090716, end: 20090915
  4. FOLIC ACID [Concomitant]
     Indication: PROPHYLAXIS
     Dates: start: 20090708
  5. VITAMIN B-12 [Concomitant]
     Indication: PROPHYLAXIS
     Dates: start: 20090708
  6. DEXAMETHASONE TAB [Concomitant]
     Indication: PROPHYLAXIS
     Dates: start: 20090715
  7. PARACETAMOL [Concomitant]
     Indication: MUSCULOSKELETAL PAIN
     Dates: start: 20090803
  8. OXYCODON [Concomitant]
     Indication: MUSCULOSKELETAL PAIN
     Dates: start: 20090805
  9. DUPHALAC [Concomitant]
     Indication: CONSTIPATION
     Dates: start: 20090401

REACTIONS (2)
  - ANAEMIA [None]
  - PNEUMONIA [None]
